FAERS Safety Report 6842337-2 (Version None)
Quarter: 2010Q3

REPORT INFORMATION
  Report Type: 
  Country: None (occurrence: None)
  Receive Date: 20100714
  Receipt Date: 20070723
  Transmission Date: 20110219
  Serious: No
  Sender: FDA-Public Use
  Company Number: US-PFIZER INC-2007062473

PATIENT
  Sex: Female
  Weight: 61.363 kg

DRUGS (6)
  1. CHANTIX [Suspect]
     Indication: SMOKING CESSATION THERAPY
     Route: 048
     Dates: start: 20070701
  2. ZOLOFT [Concomitant]
  3. MORPHINE SULFATE [Concomitant]
     Indication: ARTHRALGIA
  4. POTASSIUM CHLORIDE [Concomitant]
  5. HYDROCHLOROTHIAZIDE [Concomitant]
  6. NEURONTIN [Concomitant]
     Indication: PAIN

REACTIONS (2)
  - SOMNOLENCE [None]
  - URINARY INCONTINENCE [None]
